FAERS Safety Report 9070227 (Version 1)
Quarter: 2013Q1

REPORT INFORMATION
  Report Type: Spontaneous
  Country: US (occurrence: US)
  Receive Date: 20130215
  Receipt Date: 20130215
  Transmission Date: 20140127
  Serious: No
  Sender: FDA-Public Use
  Company Number: US-TEVA-386512USA

PATIENT
  Age: 32 Year
  Sex: Female
  Weight: 79.45 kg

DRUGS (6)
  1. PROAIR HFA [Suspect]
     Route: 055
  2. LAMICTAL [Concomitant]
     Dosage: 200 MILLIGRAM DAILY;
     Route: 048
  3. VYVANSE [Concomitant]
     Dosage: 70 MILLIGRAM DAILY;
     Route: 048
  4. CLONAZEPAM [Concomitant]
     Dosage: 4 MILLIGRAM DAILY;
     Route: 048
  5. ALBUTEROL [Concomitant]
     Route: 055
  6. ZYRTEC [Concomitant]
     Dosage: 10 MILLIGRAM DAILY;
     Route: 048

REACTIONS (1)
  - Bronchitis [Recovered/Resolved]
